FAERS Safety Report 5771906-6 (Version None)
Quarter: 2008Q2

REPORT INFORMATION
  Report Type: 
  Country: None (occurrence: None)
  Receive Date: 20080612
  Receipt Date: 20080612
  Transmission Date: 20081010
  Serious: Yes (Hospitalization)
  Sender: FDA-Public Use
  Company Number: None

PATIENT
  Sex: Male
  Weight: 91.2637 kg

DRUGS (17)
  1. DOCETAXEL [Suspect]
     Indication: PANCREATIC CARCINOMA METASTATIC
     Dosage: IV, D1+D8/28DAYS
     Route: 042
  2. GEMCITABINE [Suspect]
     Indication: PANCREATIC CARCINOMA METASTATIC
     Dosage: IV,  D8+D15/28DAY
     Route: 042
  3. CAPECITABINE 1000 MG/M2/DAY [Suspect]
     Indication: PANCREATIC CARCINOMA METASTATIC
     Dosage: PO, QD
     Route: 048
  4. ACTIGALL [Concomitant]
  5. COMPAZINE [Concomitant]
  6. CREON [Concomitant]
  7. DECADRON [Concomitant]
  8. DILAUDID [Concomitant]
  9. EMLA [Concomitant]
  10. LEVEMIR [Concomitant]
  11. MARINOL [Concomitant]
  12. MIRALAX [Concomitant]
  13. MICARDIS [Concomitant]
  14. M.V.I. [Concomitant]
  15. NOVOLOG [Concomitant]
  16. OMEPRAZOLE [Concomitant]
  17. VICODIN [Concomitant]

REACTIONS (2)
  - CHOLANGITIS [None]
  - CHROMATURIA [None]
